FAERS Safety Report 9760304 (Version 2)
Quarter: 2015Q3

REPORT INFORMATION
  Report Type: Spontaneous
  Country: US (occurrence: US)
  Receive Date: 20131216
  Receipt Date: 20150806
  Transmission Date: 20151125
  Serious: No
  Sender: FDA-Public Use
  Company Number: US-GILEAD-2010-0029182

PATIENT
  Age: 66 Year
  Sex: Female
  Weight: 81.65 kg

DRUGS (11)
  1. LETAIRIS [Suspect]
     Active Substance: AMBRISENTAN
     Indication: PULMONARY ARTERIAL HYPERTENSION
     Route: 048
     Dates: start: 20100426, end: 20100511
  2. XALATAN [Concomitant]
     Active Substance: LATANOPROST
  3. MULTIPLE VITAMIN WOMENS [Concomitant]
  4. TRIAM-A [Concomitant]
  5. INDOMETHACIN. [Concomitant]
     Active Substance: INDOMETHACIN
  6. AMARYL [Concomitant]
     Active Substance: GLIMEPIRIDE
  7. REVATIO [Concomitant]
     Active Substance: SILDENAFIL CITRATE
  8. NORVASC [Concomitant]
     Active Substance: AMLODIPINE BESYLATE
  9. ASPIRIN. [Concomitant]
     Active Substance: ASPIRIN
  10. ALENDRONATE [Concomitant]
     Active Substance: ALENDRONATE SODIUM
  11. MOBIC [Concomitant]
     Active Substance: MELOXICAM

REACTIONS (1)
  - Oedema [Unknown]
